FAERS Safety Report 6875379-1 (Version None)
Quarter: 2010Q2

REPORT INFORMATION
  Report Type: 
  Country: None (occurrence: None)
  Receive Date: 20100616
  Receipt Date: 20080502
  Transmission Date: 20101027
  Serious: Yes (Other)
  Sender: FDA-Public Use
  Company Number: S08-USA-01244-01

PATIENT
  Age: 49 Year
  Sex: Female

DRUGS (16)
  1. NAMENDA [Suspect]
     Indication: AMNESIA
     Dosage: 5 MG (5 MG, ONCE A DAY), ORAL; 10 MG (5 MG, TWICE A DAY), ORAL; 15 MG (15 MG, ONCE A DAY), ORAL
     Route: 048
     Dates: start: 20071001, end: 20071007
  2. NAMENDA [Suspect]
     Indication: AMNESIA
     Dosage: 5 MG (5 MG, ONCE A DAY), ORAL; 10 MG (5 MG, TWICE A DAY), ORAL; 15 MG (15 MG, ONCE A DAY), ORAL
     Route: 048
     Dates: start: 20071008, end: 20071014
  3. NAMENDA [Suspect]
     Indication: AMNESIA
     Dosage: 5 MG (5 MG, ONCE A DAY), ORAL; 10 MG (5 MG, TWICE A DAY), ORAL; 15 MG (15 MG, ONCE A DAY), ORAL
     Route: 048
     Dates: start: 20071015, end: 20071021
  4. NAMENDA [Suspect]
     Indication: AMNESIA
     Dosage: 20 MG (10 MG, TWICE A DAY), ORAL; 10 MG (10 MG, ONCE A DAY), ORAL
     Route: 048
     Dates: start: 20071022, end: 20080218
  5. NAMENDA [Suspect]
     Indication: AMNESIA
     Dosage: 20 MG (10 MG, TWICE A DAY), ORAL; 10 MG (10 MG, ONCE A DAY), ORAL
     Route: 048
     Dates: start: 20080219, end: 20080303
  6. NAMENDA [Suspect]
     Indication: AMNESIA
     Dosage: 5 MG (5 MG, ONCE A DAY), ORAL
     Route: 048
     Dates: start: 20080304, end: 20080317
  7. CYMBALTA [Concomitant]
  8. LAMICTAL [Concomitant]
  9. ATIVAN [Concomitant]
  10. LYRICA [Concomitant]
  11. BUTALBITAL WITH ACETAMINOPHEN AND CAFFEINE [Concomitant]
  12. NASONEX (MOMETASONE FUROATE) (MOMETASONE FUROATE) [Concomitant]
  13. VISTARIL (HYDROXYZINE EMBONATE) (HYDROXYZINE EMBONATE) [Concomitant]
  14. PHENERGAN (PROMETHAZINE) [Concomitant]
  15. LASIX [Concomitant]
  16. ESTROVEN (PHYTOESTROGENS/BLACK COHOSH) [Concomitant]

REACTIONS (6)
  - IRRITABILITY [None]
  - NAUSEA [None]
  - NERVOUSNESS [None]
  - PARANOIA [None]
  - SUICIDAL IDEATION [None]
  - WEIGHT INCREASED [None]
